FAERS Safety Report 21359086 (Version 1)
Quarter: 2022Q3

REPORT INFORMATION
  Report Type: Spontaneous
  Country: US (occurrence: None)
  Receive Date: 20220921
  Receipt Date: 20220921
  Transmission Date: 20221026
  Serious: Yes (Hospitalization)
  Sender: FDA-Public Use
  Company Number: 2022A319192

PATIENT
  Age: 33552 Day
  Sex: Female

DRUGS (1)
  1. SYMBICORT [Suspect]
     Active Substance: BUDESONIDE\FORMOTEROL FUMARATE DIHYDRATE
     Indication: Chronic obstructive pulmonary disease
     Dosage: 160/4.5 MCG, AS 2 INHALATIONS 2 TIMES PER DAY
     Route: 055

REACTIONS (7)
  - Fall [Recovering/Resolving]
  - Pelvic fracture [Recovering/Resolving]
  - Fracture pain [Recovering/Resolving]
  - Gait disturbance [Recovering/Resolving]
  - Pneumonia [Not Recovered/Not Resolved]
  - Device delivery system issue [Unknown]
  - Device use issue [Unknown]

NARRATIVE: CASE EVENT DATE: 20220825
